FAERS Safety Report 9432091 (Version 2)
Quarter: 2013Q3

REPORT INFORMATION
  Report Type: Spontaneous
  Country: US (occurrence: US)
  Receive Date: 20130731
  Receipt Date: 20130813
  Transmission Date: 20140515
  Serious: No
  Sender: FDA-Public Use
  Company Number: US-PFIZER INC-2013217525

PATIENT
  Age: 61 Year
  Sex: Female
  Weight: 96.15 kg

DRUGS (9)
  1. XELJANZ [Suspect]
     Indication: RHEUMATOID ARTHRITIS
     Dosage: 5 MG, 2X/DAY
     Route: 048
  2. CYMBALTA [Suspect]
     Dosage: 20 MG, UNK
  3. METHOTREXATE [Concomitant]
     Dosage: 2.5 MG, UNK
  4. FOLIC ACID [Concomitant]
     Dosage: 1 MG, UNK
  5. DETROL LA [Concomitant]
     Dosage: 4 MG, UNK
  6. MELOXICAM [Concomitant]
     Dosage: 15 MG, UNK
  7. TUMS CALCIUM [Concomitant]
     Dosage: 750 MG, UNK
  8. ARMOUR THYROID [Concomitant]
     Dosage: 180 MG, UNK
  9. TYLENOL [Concomitant]
     Dosage: 500 MG, UNK

REACTIONS (3)
  - Limb discomfort [Unknown]
  - Knee deformity [Unknown]
  - Fall [Unknown]
